FAERS Safety Report 12121613 (Version 2)
Quarter: 2016Q1

REPORT INFORMATION
  Report Type: Spontaneous
  Country: CN (occurrence: CN)
  Receive Date: 20160226
  Receipt Date: 20160314
  Transmission Date: 20160526
  Serious: Yes (Hospitalization, Other)
  Sender: FDA-Public Use
  Company Number: CN-ELI_LILLY_AND_COMPANY-CN201602006037

PATIENT
  Sex: Female

DRUGS (2)
  1. HUMULIN R [Suspect]
     Active Substance: INSULIN HUMAN
     Indication: DIABETES MELLITUS
     Dosage: 16 U, EACH MORNING
     Route: 058
  2. HUMULIN R [Suspect]
     Active Substance: INSULIN HUMAN
     Dosage: 12 U, EACH EVENING
     Route: 058

REACTIONS (7)
  - Blood glucose decreased [Unknown]
  - Renal disorder [Unknown]
  - Abasia [Not Recovered/Not Resolved]
  - Lumbar vertebral fracture [Unknown]
  - Senile dementia [Unknown]
  - Aphasia [Not Recovered/Not Resolved]
  - Blood glucose increased [Unknown]
